FAERS Safety Report 17824304 (Version 1)
Quarter: 2020Q2

REPORT INFORMATION
  Report Type: Spontaneous
  Country: US (occurrence: US)
  Receive Date: 20200526
  Receipt Date: 20200526
  Transmission Date: 20200714
  Serious: No
  Sender: FDA-Public Use
  Company Number: US-MYLANLABS-2020M1051238

PATIENT
  Sex: Female
  Weight: 11 kg

DRUGS (7)
  1. EPIPEN JR [Suspect]
     Active Substance: EPINEPHRINE
     Indication: MILK ALLERGY
  2. EPINEPHRINE INJECTION USP AUTO-INJECTOR [Suspect]
     Active Substance: EPINEPHRINE
     Indication: ALLERGY TO PLANTS
     Dosage: UNK
  3. EPINEPHRINE INJECTION USP AUTO-INJECTOR [Suspect]
     Active Substance: EPINEPHRINE
     Indication: MILK ALLERGY
  4. EPIPEN JR [Suspect]
     Active Substance: EPINEPHRINE
     Indication: FOOD ALLERGY
  5. BENADRYL [Concomitant]
     Active Substance: DIPHENHYDRAMINE HYDROCHLORIDE
     Dosage: UNK
  6. EPIPEN JR [Suspect]
     Active Substance: EPINEPHRINE
     Indication: ALLERGY TO PLANTS
     Dosage: UNK UNK, PRN (AS NEEDED)
     Route: 058
     Dates: start: 20200520, end: 20200520
  7. EPINEPHRINE INJECTION USP AUTO-INJECTOR [Suspect]
     Active Substance: EPINEPHRINE
     Indication: FOOD ALLERGY

REACTIONS (2)
  - Product quality issue [Unknown]
  - Off label use [Unknown]
